FAERS Safety Report 9119898 (Version 1)
Quarter: 2013Q1

REPORT INFORMATION
  Report Type: Spontaneous
  Country: SE (occurrence: None)
  Receive Date: 20130130
  Receipt Date: 20130130
  Transmission Date: 20140127
  Serious: Yes (Other)
  Sender: FDA-Public Use
  Company Number: 2013-01026

PATIENT
  Age: 87 Year
  Sex: Female

DRUGS (1)
  1. MIRTAZAPINE [Suspect]
     Dosage: UNK, UNKNOWN, UNKNOWN

REACTIONS (2)
  - Infarction [None]
  - Hyponatraemia [None]
